FAERS Safety Report 10954227 (Version 1)
Quarter: 2015Q1

REPORT INFORMATION
  Report Type: Spontaneous
  Country: FR (occurrence: FR)
  Receive Date: 20150325
  Receipt Date: 20150325
  Transmission Date: 20150721
  Serious: Yes (Hospitalization)
  Sender: FDA-Public Use
  Company Number: FR-EISAI MEDICAL RESEARCH-EC-2015-005173

PATIENT
  Age: 29 Year
  Sex: Female

DRUGS (5)
  1. TRACLEER [Suspect]
     Active Substance: BOSENTAN\BOSENTAN MONOHYDRATE
     Indication: SCLERODERMA ASSOCIATED DIGITAL ULCER
     Route: 048
     Dates: end: 20150225
  2. PARIET [Suspect]
     Active Substance: RABEPRAZOLE SODIUM
     Indication: BURN OESOPHAGEAL
     Dosage: UNKNOWN
     Route: 048
     Dates: end: 20150225
  3. ROCEPHINE [Suspect]
     Active Substance: CEFTRIAXONE SODIUM
     Indication: INFLUENZA LIKE ILLNESS
     Dosage: UNKNOWN
     Route: 048
     Dates: start: 20150221, end: 20150225
  4. METOJECT [Suspect]
     Active Substance: METHOTREXATE SODIUM
     Indication: SCLERODERMA
     Route: 048
     Dates: end: 20150225
  5. TRACLEER [Suspect]
     Active Substance: BOSENTAN\BOSENTAN MONOHYDRATE
     Route: 048
     Dates: start: 20150302

REACTIONS (2)
  - Agranulocytosis [Recovered/Resolved]
  - Thrombocytopenia [Recovered/Resolved]

NARRATIVE: CASE EVENT DATE: 20150225
